FAERS Safety Report 5527893-9 (Version None)
Quarter: 2007Q4

REPORT INFORMATION
  Report Type: 
  Country: None (occurrence: None)
  Receive Date: 20071126
  Receipt Date: 20071126
  Transmission Date: 20080405
  Serious: Yes (Other)
  Sender: FDA-Public Use
  Company Number: None

PATIENT
  Age: 38 Year
  Sex: Male
  Weight: 143.7903 kg

DRUGS (1)
  1. CHANTIX [Suspect]
     Indication: SMOKING CESSATION THERAPY
     Dosage: 1MG 2X DAILY PO
     Route: 048
     Dates: start: 20071001, end: 20071120

REACTIONS (6)
  - AGGRESSION [None]
  - ANGER [None]
  - DEPRESSED MOOD [None]
  - FEELING ABNORMAL [None]
  - FRUSTRATION [None]
  - PSYCHOTIC DISORDER [None]
